FAERS Safety Report 4752383-0 (Version None)
Quarter: 2005Q3

REPORT INFORMATION
  Report Type: 
  Country: None (occurrence: None)
  Receive Date: 20050825
  Receipt Date: 20050815
  Transmission Date: 20060218
  Serious: Yes (Other)
  Sender: FDA-Public Use
  Company Number: PHHO2005US12844

PATIENT
  Age: 56 Year
  Sex: Female

DRUGS (5)
  1. ZOLEDRONATE [Suspect]
     Indication: METASTASES TO BONE
     Dosage: 4 MG, TIW
     Dates: start: 20050412
  2. EPIRUBICIN [Suspect]
     Indication: BREAST CANCER
     Dosage: 75 MG/M2, TIW
     Route: 042
     Dates: start: 20050712
  3. TAXOTERE [Suspect]
     Indication: BREAST CANCER
     Dosage: 75 MG/M2, TIW
     Route: 042
     Dates: start: 20050712
  4. MORPHINE [Concomitant]
     Indication: PAIN
     Dosage: 4 MG, UNK
     Route: 042
     Dates: start: 20050424, end: 20050424
  5. DEXAMETHASONE [Concomitant]
     Indication: PROPHYLAXIS
     Dosage: 10 MG, UNK
     Route: 042
     Dates: start: 20050424, end: 20050424

REACTIONS (3)
  - BACK PAIN [None]
  - INTERVERTEBRAL DISC PROTRUSION [None]
  - PELVIC PAIN [None]
